FAERS Safety Report 11529217 (Version 1)
Quarter: 2015Q3

REPORT INFORMATION
  Report Type: Spontaneous
  Country: US (occurrence: US)
  Receive Date: 20150921
  Receipt Date: 20150921
  Transmission Date: 20151125
  Serious: Yes (Other)
  Sender: FDA-Public Use
  Company Number: US-TEVA-576910USA

PATIENT
  Sex: Male

DRUGS (2)
  1. CEFACLOR. [Suspect]
     Active Substance: CEFACLOR
     Route: 065
  2. PENICILLIN V POTASSIUM. [Suspect]
     Active Substance: PENICILLIN V POTASSIUM
     Route: 065

REACTIONS (2)
  - Anaphylactic reaction [Unknown]
  - Rash [Unknown]
